FAERS Safety Report 5055138-5 (Version None)
Quarter: 2006Q3

REPORT INFORMATION
  Report Type: 
  Country: None (occurrence: None)
  Receive Date: 20060714
  Receipt Date: 20060531
  Transmission Date: 20061208
  Serious: Yes (Other)
  Sender: FDA-Public Use
  Company Number: SGB1-2006-00301

PATIENT
  Age: 48 Year
  Sex: Female

DRUGS (11)
  1. LANTHANUM CARBONATE [Suspect]
     Indication: HYPERPHOSPHATAEMIA
     Dosage: SEE IMAGE
     Route: 048
     Dates: start: 20050329, end: 20050508
  2. LANTHANUM CARBONATE [Suspect]
     Indication: HYPERPHOSPHATAEMIA
     Dosage: SEE IMAGE
     Route: 048
     Dates: start: 20050510, end: 20050523
  3. LANTHANUM CARBONATE [Suspect]
     Indication: HYPERPHOSPHATAEMIA
     Dosage: SEE IMAGE
     Route: 048
     Dates: start: 20050524, end: 20060525
  4. RINDERON VG           (GENTAMICIN SULFATE, BETAMETHASONE VALERATE) [Concomitant]
  5. HEPARIN [Concomitant]
  6. ROCALTROL [Concomitant]
  7. EPOGEN [Suspect]
  8. OMEPRAZOLE [Concomitant]
  9. FERRICON (CIDEFERRON) [Concomitant]
  10. MS ONSHIPPU [Concomitant]
  11. GLUNON (GLUCOSE) [Concomitant]

REACTIONS (1)
  - BREAST CANCER FEMALE [None]
